FAERS Safety Report 17905376 (Version 1)
Quarter: 2020Q2

REPORT INFORMATION
  Report Type: Spontaneous
  Country: DK (occurrence: DK)
  Receive Date: 20200616
  Receipt Date: 20200616
  Transmission Date: 20200714
  Serious: Yes (Disabling)
  Sender: FDA-Public Use
  Company Number: DK-SAMSUNG BIOEPIS-SB-2020-19380

PATIENT
  Age: 45 Year
  Sex: Male
  Weight: 75 kg

DRUGS (5)
  1. PANODIL ZAPP [Concomitant]
     Active Substance: ACETAMINOPHEN
     Indication: PAIN
     Route: 048
     Dates: start: 2016
  2. IBUPROFEN. [Concomitant]
     Active Substance: IBUPROFEN
     Indication: PAIN
     Route: 048
     Dates: start: 2016
  3. GABAPENTIN. [Concomitant]
     Active Substance: GABAPENTIN
     Indication: PAIN
     Route: 048
     Dates: start: 2016
  4. IMRALDI [Suspect]
     Active Substance: ADALIMUMAB
     Indication: PSORIASIS
     Dosage: PAUSED IN MAY
     Route: 030
     Dates: start: 20190313
  5. IMRALDI [Suspect]
     Active Substance: ADALIMUMAB
     Dosage: RESTARTED IN 31-OCT-2019
     Route: 030
     Dates: start: 20191031, end: 20200106

REACTIONS (18)
  - Vomiting [Not Recovered/Not Resolved]
  - Product use issue [Unknown]
  - Hot flush [Not Recovered/Not Resolved]
  - Abdominal pain [Not Recovered/Not Resolved]
  - Myalgia [Not Recovered/Not Resolved]
  - Product substitution issue [Unknown]
  - Drug ineffective [Not Recovered/Not Resolved]
  - Headache [Not Recovered/Not Resolved]
  - Pyrexia [Not Recovered/Not Resolved]
  - Palpitations [Not Recovered/Not Resolved]
  - Psoriasis [Not Recovered/Not Resolved]
  - Visual impairment [Not Recovered/Not Resolved]
  - Discomfort [Not Recovered/Not Resolved]
  - Erythema [Not Recovered/Not Resolved]
  - Oropharyngeal pain [Recovering/Resolving]
  - Nausea [Not Recovered/Not Resolved]
  - Upper respiratory tract infection [Not Recovered/Not Resolved]
  - Insomnia [Not Recovered/Not Resolved]

NARRATIVE: CASE EVENT DATE: 20191031
